FAERS Safety Report 5264536-6 (Version None)
Quarter: 2007Q1

REPORT INFORMATION
  Report Type: 
  Country: None (occurrence: None)
  Receive Date: 20061213
  Receipt Date: 20050419
  Transmission Date: 20070707
  Serious: Yes (Other)
  Sender: FDA-Public Use
  Company Number: 2005UW05272

PATIENT
  Sex: Female

DRUGS (1)
  1. IRESSA [Suspect]
     Indication: NON-SMALL CELL LUNG CANCER
     Dates: start: 20040601

REACTIONS (3)
  - DIARRHOEA [None]
  - DYSPEPSIA [None]
  - STOMACH DISCOMFORT [None]
